FAERS Safety Report 23020572 (Version 1)
Quarter: 2023Q4

REPORT INFORMATION
  Report Type: Spontaneous
  Country: US (occurrence: None)
  Receive Date: 20231003
  Receipt Date: 20231003
  Transmission Date: 20240110
  Serious: No
  Sender: FDA-Public Use
  Company Number: None

PATIENT
  Sex: Female

DRUGS (1)
  1. AJOVY [Suspect]
     Active Substance: FREMANEZUMAB-VFRM
     Indication: Cervicogenic headache
     Dosage: FREQUENCY : MONTHLY;?
     Route: 058
     Dates: start: 202308

REACTIONS (6)
  - Nausea [None]
  - Rash [None]
  - Skin burning sensation [None]
  - Headache [None]
  - Migraine [None]
  - Drug ineffective [None]
